FAERS Safety Report 6050190-2 (Version None)
Quarter: 2009Q1

REPORT INFORMATION
  Report Type: 
  Country: None (occurrence: None)
  Receive Date: 20090121
  Receipt Date: 20090113
  Transmission Date: 20090719
  Serious: Yes (Life-Threatening)
  Sender: FDA-Public Use
  Company Number: 2009-189599-NL

PATIENT
  Age: 24 Year
  Sex: Male

DRUGS (4)
  1. DEXAMETHASONE SODIUM PHOSPHATE [Suspect]
     Indication: DRUG WITHDRAWAL SYNDROME
     Dosage: MG
  2. HEROIN [Suspect]
     Indication: DRUG WITHDRAWAL SYNDROME
     Dosage: DF
  3. ACETYLDIHYDROCODEINE [Suspect]
     Indication: DRUG WITHDRAWAL SYNDROME
     Dosage: DF
  4. PHENIRAMINE [Suspect]
     Indication: DRUG WITHDRAWAL SYNDROME
     Dosage: DF

REACTIONS (13)
  - ADRENOCORTICAL INSUFFICIENCY ACUTE [None]
  - BACTERIAL INFECTION [None]
  - BLOOD CULTURE POSITIVE [None]
  - CUSHING'S SYNDROME [None]
  - DRUG INEFFECTIVE [None]
  - HYDROCEPHALUS [None]
  - IATROGENIC INJURY [None]
  - MENINGITIS TUBERCULOUS [None]
  - OFF LABEL USE [None]
  - OVERDOSE [None]
  - SEPSIS [None]
  - STAPHYLOCOCCAL INFECTION [None]
  - TOOTH ABSCESS [None]
